FAERS Safety Report 5145608-3 (Version None)
Quarter: 2006Q4

REPORT INFORMATION
  Report Type: 
  Country: None (occurrence: None)
  Receive Date: 20061101
  Receipt Date: 20061020
  Transmission Date: 20070319
  Serious: Yes (Other)
  Sender: FDA-Public Use
  Company Number: HQWYE388120OCT06

PATIENT
  Sex: Female

DRUGS (7)
  1. PROTONIX [Suspect]
     Indication: DRUG USE FOR UNKNOWN INDICATION
     Dosage: 40 MG UNSPECIFIED FREQUENCY, UNKNOWN
  2. BISOPROLOL FUMARATE AND HYDROCHLOROTHIAZIDE [Suspect]
     Indication: DRUG USE FOR UNKNOWN INDICATION
     Dosage: 10/6.25 MG
  3. COZAAR [Suspect]
     Indication: DRUG USE FOR UNKNOWN INDICATION
     Dosage: 100 MG
  4. LEVOTHYROXINE SODIUM [Suspect]
     Indication: DRUG USE FOR UNKNOWN INDICATION
     Dosage: 50 MCG
  5. PROCRIT [Suspect]
     Indication: DRUG USE FOR UNKNOWN INDICATION
     Dosage: EVERY 3 WEEKS
  6. ZOLOFT [Suspect]
     Indication: DRUG USE FOR UNKNOWN INDICATION
     Dosage: 50 MG
  7. NORVASC [Suspect]
     Dosage: 5MG

REACTIONS (1)
  - SINGLE FUNCTIONAL KIDNEY [None]
